FAERS Safety Report 6713489-X (Version None)
Quarter: 2010Q2

REPORT INFORMATION
  Report Type: 
  Country: None (occurrence: None)
  Receive Date: 20100506
  Receipt Date: 20100429
  Transmission Date: 20101027
  Serious: Yes (Hospitalization, Other)
  Sender: FDA-Public Use
  Company Number: US-ABBOTT-10P-163-0617338-00

PATIENT
  Sex: Female
  Weight: 94.432 kg

DRUGS (29)
  1. HUMIRA [Suspect]
     Indication: RHEUMATOID ARTHRITIS
     Route: 058
     Dates: start: 20071219, end: 20081101
  2. HUMIRA [Suspect]
     Route: 058
     Dates: start: 20090401, end: 20090922
  3. METHOTREXATE [Concomitant]
     Indication: DRUG USE FOR UNKNOWN INDICATION
     Dates: start: 20040501, end: 20040801
  4. METHOTREXATE [Concomitant]
     Dates: start: 20040801
  5. METHOTREXATE [Concomitant]
  6. METHOTREXATE [Concomitant]
  7. METHOTREXATE [Concomitant]
     Dates: start: 20080301
  8. METHOTREXATE [Concomitant]
     Dates: end: 20081101
  9. PLAQUENIL [Concomitant]
     Indication: DRUG USE FOR UNKNOWN INDICATION
  10. ARAVA [Concomitant]
     Indication: RHEUMATOID ARTHRITIS
     Dates: start: 20051101
  11. KENALOG [Concomitant]
     Indication: DRUG USE FOR UNKNOWN INDICATION
     Route: 030
     Dates: start: 20090401
  12. PREDNISONE [Concomitant]
     Indication: RHEUMATOID ARTHRITIS
  13. TYLENOL-500 [Concomitant]
     Indication: DRUG USE FOR UNKNOWN INDICATION
     Dosage: 2 X 325 MG EVERY 4-6 HRS AS NEEDED
  14. HYDROCHLOROTHIAZIDE [Concomitant]
     Indication: DRUG USE FOR UNKNOWN INDICATION
     Dosage: 25 MG X 1/2 TABLET TUES/THU/SAT
  15. HYDROCHLOROTHIAZIDE [Concomitant]
     Dosage: 25 MG MON/WED/FRI/SUN
  16. BIOTIN [Concomitant]
     Indication: DRUG USE FOR UNKNOWN INDICATION
  17. VIT D-3 [Concomitant]
     Indication: DRUG USE FOR UNKNOWN INDICATION
  18. ALBUTEROL SULFATE [Concomitant]
     Indication: DRUG USE FOR UNKNOWN INDICATION
     Dosage: 1-2 PUFFS EVERY 4-6 HOURS AS NEEDED
     Route: 055
  19. ZYRTEC [Concomitant]
     Indication: DRUG USE FOR UNKNOWN INDICATION
     Dosage: ONE TABLET DAILY AS NEEDED
  20. FLONASE [Concomitant]
     Indication: DRUG USE FOR UNKNOWN INDICATION
     Dosage: 2 SPRAYS EACH NOSTRIL DAILY
     Route: 045
  21. COZAAR [Concomitant]
     Indication: DRUG USE FOR UNKNOWN INDICATION
  22. ALTACE [Concomitant]
     Indication: DRUG USE FOR UNKNOWN INDICATION
  23. FOLIC ACID [Concomitant]
     Indication: DRUG USE FOR UNKNOWN INDICATION
  24. FLAXSEED OIL [Concomitant]
     Indication: DRUG USE FOR UNKNOWN INDICATION
  25. CITRACAL + D [Concomitant]
     Indication: DRUG USE FOR UNKNOWN INDICATION
     Dosage: 315 MG/200 UNIT
  26. RESTASIS [Concomitant]
     Indication: DRUG USE FOR UNKNOWN INDICATION
     Dosage: 1 DROP IN EACH EYE DAILY
     Route: 047
  27. EVENING PRIMROSE [Concomitant]
     Indication: DRUG USE FOR UNKNOWN INDICATION
  28. MAGNESIUM [Concomitant]
     Indication: DRUG USE FOR UNKNOWN INDICATION
     Route: 048
  29. BIAXIN XL-PAC [Concomitant]
     Indication: DRUG USE FOR UNKNOWN INDICATION
     Dosage: 500 MG X 2 TABLETS

REACTIONS (21)
  - ARTHRALGIA [None]
  - BRONCHITIS [None]
  - CHRONIC SINUSITIS [None]
  - DEMYELINATION [None]
  - DIZZINESS [None]
  - DRY EYE [None]
  - DYSTONIA [None]
  - EXTREMITY CONTRACTURE [None]
  - GROIN PAIN [None]
  - HAEMATURIA [None]
  - HEADACHE [None]
  - HEPATIC ENZYME INCREASED [None]
  - IMMUNOSUPPRESSION [None]
  - MUSCULAR WEAKNESS [None]
  - NAUSEA [None]
  - PAIN IN EXTREMITY [None]
  - REVERSIBLE POSTERIOR LEUKOENCEPHALOPATHY SYNDROME [None]
  - RHEUMATOID ARTHRITIS [None]
  - VERTIGO [None]
  - VITAMIN D DEFICIENCY [None]
  - VOMITING [None]
